FAERS Safety Report 18547251 (Version 2)
Quarter: 2021Q1

REPORT INFORMATION
  Report Type: Spontaneous
  Country: CA (occurrence: CA)
  Receive Date: 20201126
  Receipt Date: 20210318
  Transmission Date: 20210419
  Serious: Yes (Other)
  Sender: FDA-Public Use
  Company Number: CA-SAMSUNG BIOEPIS-SB-2020-35323

PATIENT
  Age: 44 Year
  Sex: Male
  Weight: 80 kg

DRUGS (2)
  1. INFLIXIMAB [Suspect]
     Active Substance: INFLIXIMAB
     Indication: COLITIS ULCERATIVE
     Route: 042
  2. PREDNISONE. [Concomitant]
     Active Substance: PREDNISONE
     Indication: PRODUCT USED FOR UNKNOWN INDICATION
     Route: 065

REACTIONS (17)
  - Asthenia [Recovered/Resolved]
  - Back pain [Recovered/Resolved]
  - Condition aggravated [Recovered/Resolved]
  - Dyspnoea [Recovered/Resolved]
  - Flatulence [Recovered/Resolved]
  - Dizziness [Recovered/Resolved]
  - Heart rate increased [Recovered/Resolved]
  - Off label use [Recovered/Resolved]
  - Heart rate irregular [Recovered/Resolved]
  - Muscle spasms [Recovered/Resolved]
  - Body temperature increased [Recovered/Resolved]
  - Chest discomfort [Recovered/Resolved]
  - Drug specific antibody present [Recovered/Resolved]
  - Headache [Recovered/Resolved]
  - Hot flush [Recovered/Resolved]
  - Anaphylactic reaction [Recovered/Resolved]
  - Cold sweat [Recovered/Resolved]
